FAERS Safety Report 25625489 (Version 1)
Quarter: 2025Q3

REPORT INFORMATION
  Report Type: Spontaneous
  Country: JP (occurrence: JP)
  Receive Date: 20250731
  Receipt Date: 20250731
  Transmission Date: 20251021
  Serious: Yes (Death)
  Sender: BOEHRINGER INGELHEIM
  Company Number: JP-NBI-2025-BI-086153

PATIENT

DRUGS (1)
  1. OFEV [Suspect]
     Active Substance: NINTEDANIB
     Indication: Product used for unknown indication

REACTIONS (6)
  - Disease progression [Fatal]
  - Infection [Fatal]
  - Decreased appetite [Unknown]
  - Diarrhoea [Unknown]
  - Liver disorder [Unknown]
  - Nausea [Unknown]
